FAERS Safety Report 10375500 (Version 1)
Quarter: 2014Q3

REPORT INFORMATION
  Report Type: Spontaneous
  Country: CA (occurrence: None)
  Receive Date: 20140806
  Receipt Date: 20140806
  Transmission Date: 20150326
  Serious: Yes (Other)
  Sender: FDA-Public Use
  Company Number: BD-2014-0040

PATIENT
  Age: 36 Year

DRUGS (13)
  1. CISPLATIN. [Concomitant]
     Active Substance: CISPLATIN
  2. LEUCOVORIN [Concomitant]
     Active Substance: LEUCOVORIN
  3. SERTRALINE [Concomitant]
     Active Substance: SERTRALINE HYDROCHLORIDE
  4. SODIUM BICARBONATE (SODIUM BICARBONATE) [Concomitant]
  5. METHOTREXATE [Concomitant]
     Active Substance: METHOTREXATE
  6. ONDANSETRON. [Suspect]
     Active Substance: ONDANSETRON
     Indication: VOMITING
     Route: 042
  7. DEXAMETHASONE. [Concomitant]
     Active Substance: DEXAMETHASONE
  8. PANTOPRAZOLE [Concomitant]
     Active Substance: PANTOPRAZOLE SODIUM
  9. LORAZEPAM. [Concomitant]
     Active Substance: LORAZEPAM
  10. DOXORUBICIN [Concomitant]
     Active Substance: DOXORUBICIN
  11. ENOXAPARIN [Concomitant]
     Active Substance: ENOXAPARIN
  12. ZOLPIDEM [Concomitant]
     Active Substance: ZOLPIDEM\ZOLPIDEM TARTRATE
  13. ONDANSETRON. [Suspect]
     Active Substance: ONDANSETRON
     Indication: NAUSEA
     Route: 042

REACTIONS (4)
  - Cardiotoxicity [None]
  - Bradycardia [None]
  - Nodal arrhythmia [None]
  - Ventricular tachycardia [None]
